FAERS Safety Report 10120192 (Version 2)
Quarter: 2014Q2

REPORT INFORMATION
  Report Type: Spontaneous
  Country: CN (occurrence: CN)
  Receive Date: 20140426
  Receipt Date: 20140516
  Transmission Date: 20141212
  Serious: Yes (Hospitalization)
  Sender: FDA-Public Use
  Company Number: CN-JNJFOC-20140410226

PATIENT
  Age: 12 Month
  Sex: Male
  Weight: 12 kg

DRUGS (2)
  1. TYLENOL CHILD UNSPECIFIED [Suspect]
     Route: 048
  2. TYLENOL CHILD UNSPECIFIED [Suspect]
     Indication: PYREXIA
     Route: 048
     Dates: start: 20131030, end: 20131031

REACTIONS (1)
  - Eyelid oedema [Recovering/Resolving]
